FAERS Safety Report 10067860 (Version 2)
Quarter: 2014Q2

REPORT INFORMATION
  Report Type: Spontaneous
  Country: BR (occurrence: BR)
  Receive Date: 20140409
  Receipt Date: 20140422
  Transmission Date: 20141212
  Serious: Yes (Hospitalization, Other)
  Sender: FDA-Public Use
  Company Number: BR-SA-2014SA039788

PATIENT
  Age: 77 Year
  Sex: Male
  Weight: 69.7 kg

DRUGS (5)
  1. LANTUS [Suspect]
     Indication: TYPE 2 DIABETES MELLITUS
     Route: 058
     Dates: start: 2008
  2. LANTUS [Suspect]
     Indication: TYPE 2 DIABETES MELLITUS
     Route: 065
  3. CLIKSTAR [Concomitant]
     Indication: DEVICE THERAPY
     Dosage: START DATE: APPROXIMATELY 4 MONTHS AGO
  4. ASPIRIN [Concomitant]
     Indication: CARDIOVASCULAR DISORDER
     Dosage: START DATE: APPROXIMATELY 5 YEARS AGO; STRENGTH: 100 MG
     Route: 048
  5. CRESTOR [Concomitant]
     Indication: VEIN DISORDER
     Dosage: START DATE: APPROXIMATELY 5 YEAR AGO
     Route: 048

REACTIONS (6)
  - Cerebrovascular accident [Recovered/Resolved]
  - Abnormal behaviour [Recovered/Resolved]
  - Amnesia [Recovering/Resolving]
  - Cerebrovascular accident [Recovering/Resolving]
  - Disability [Recovering/Resolving]
  - Product quality issue [Unknown]
